FAERS Safety Report 7907437-4 (Version None)
Quarter: 2011Q4

REPORT INFORMATION
  Report Type: 
  Country: None (occurrence: None)
  Receive Date: 20111109
  Receipt Date: 20111109
  Transmission Date: 20120403
  Serious: Yes (Hospitalization)
  Sender: FDA-Public Use
  Company Number: None

PATIENT
  Sex: Female
  Weight: 71.4869 kg

DRUGS (1)
  1. CABAZITAXEL [Suspect]
     Indication: GASTRIC CANCER
     Dosage: CABAZITAXEL EVERY 3 WEEKS IV
     Route: 042
     Dates: start: 20111031

REACTIONS (3)
  - PYREXIA [None]
  - NEUTROPENIA [None]
  - ASTHENIA [None]
